FAERS Safety Report 5449640-1 (Version None)
Quarter: 2007Q3

REPORT INFORMATION
  Report Type: 
  Country: None (occurrence: None)
  Receive Date: 20070910
  Receipt Date: 20070828
  Transmission Date: 20080115
  Serious: Yes (Hospitalization)
  Sender: FDA-Public Use
  Company Number: 2007RR-09651

PATIENT
  Sex: Female

DRUGS (2)
  1. CIPROFLOXACIN HCL [Suspect]
  2. PARACETAMOLO RANBAXY 120/MG/5ML SOLUZIONE ORALE (ACETAMINOPHEN/PARACET [Suspect]

REACTIONS (1)
  - DERMATITIS BULLOUS [None]
